FAERS Safety Report 5729655-6 (Version None)
Quarter: 2008Q2

REPORT INFORMATION
  Report Type: 
  Country: None (occurrence: None)
  Receive Date: 20080501
  Receipt Date: 20080417
  Transmission Date: 20081010
  Serious: Yes (Hospitalization)
  Sender: FDA-Public Use
  Company Number: DSA_31740-2008

PATIENT
  Age: 79 Year
  Sex: Female

DRUGS (13)
  1. ENALAPRIL MALEATE AND HYDROCHLOROTHIAZIDE [Suspect]
     Indication: HYPERTENSION
     Dosage: 1 DF QD 10-6.25 MG DAILY ORAL
     Route: 048
     Dates: end: 20080207
  2. IODINE (IODINE) [Suspect]
     Indication: SCAN
     Dosage: DF INTRAVENOUS (NOT OTHERWISE SPECIFIED)
     Route: 042
     Dates: start: 20080131, end: 20080131
  3. FUROSEMIDE [Suspect]
     Indication: HYPERTENSION
     Dosage: 20 MG QD ORAL
     Route: 048
     Dates: end: 20080207
  4. ACETAMINOPHEN [Concomitant]
  5. FOSAVANCE [Concomitant]
  6. ASPIRIN [Concomitant]
  7. CALCIUM [Concomitant]
  8. FONDAPARINUX SODIUM [Concomitant]
  9. PANTOPRAZOLE SODIUM [Concomitant]
  10. POTASSIUM CHLORIDE [Concomitant]
  11. PREDNISONE [Concomitant]
  12. TRIMETAZIDINE HYDROCHLORIDE [Concomitant]
  13. WARFARIN [Concomitant]

REACTIONS (7)
  - BACK PAIN [None]
  - DEEP VEIN THROMBOSIS [None]
  - DRUG INTERACTION [None]
  - DYSPNOEA [None]
  - GENERAL PHYSICAL HEALTH DETERIORATION [None]
  - PULMONARY EMBOLISM [None]
  - RENAL FAILURE ACUTE [None]
